FAERS Safety Report 9395658 (Version 1)
Quarter: 2013Q3

REPORT INFORMATION
  Report Type: Spontaneous
  Country: FR (occurrence: FR)
  Receive Date: 20130711
  Receipt Date: 20130711
  Transmission Date: 20140515
  Serious: Yes (Hospitalization)
  Sender: FDA-Public Use
  Company Number: FR-TEVA-417321ISR

PATIENT
  Age: 87 Year
  Sex: Female

DRUGS (8)
  1. FUROSEMIDE [Suspect]
     Indication: POLYURIA
     Dosage: 20 MILLIGRAM DAILY; LONG STANDING TREATMENT
     Route: 048
  2. PAROXETINE [Suspect]
     Indication: DEPRESSION
     Dosage: 1 DOSAGE FORMS DAILY; LONG STANDING TREATMENT
     Route: 048
  3. OMEPRAZOLE [Suspect]
     Dosage: 1 DOSAGE FORMS DAILY; LONG STANDING TREATMENT
     Route: 048
  4. AUGMENTIN [Suspect]
     Indication: LUNG DISORDER
     Dosage: 3 DOSAGE FORMS DAILY;
     Route: 048
     Dates: start: 20130430, end: 20130509
  5. DIFFU K [Suspect]
     Indication: HYPOKALAEMIA
     Dosage: 1 DOSAGE FORMS DAILY; LONG STANDING TREATMENT
     Route: 048
  6. UNSPECIFIED INGREDIENTS [Suspect]
     Dosage: 1 DOSAGE FORMS DAILY; LONG STANDING TREATMENT
     Route: 048
  7. KARDEGIC [Suspect]
     Indication: CARDIOVASCULAR DISORDER
     Dosage: 160 MILLIGRAM DAILY; LONG STANDING TREATMENT
     Route: 048
  8. HEMIGOXINE NATIVELLE [Suspect]
     Indication: CARDIOVASCULAR DISORDER
     Dosage: 1 DOSAGE FORMS DAILY; LONG STANDING TREATMENT
     Route: 048

REACTIONS (2)
  - Purpura [Recovering/Resolving]
  - Asthenia [Unknown]
